FAERS Safety Report 9320965 (Version 1)
Quarter: 2013Q2

REPORT INFORMATION
  Report Type: Spontaneous
  Country: US (occurrence: US)
  Receive Date: 20130531
  Receipt Date: 20130531
  Transmission Date: 20140414
  Serious: No
  Sender: FDA-Public Use
  Company Number: US-PFIZER INC-2013165415

PATIENT
  Age: 73 Year
  Sex: Male
  Weight: 86.17 kg

DRUGS (6)
  1. NEURONTIN [Suspect]
     Indication: PAIN
     Dosage: UNK
     Dates: start: 201207, end: 201207
  2. NEURONTIN [Suspect]
     Indication: OSTEOARTHRITIS
  3. AVAPRO [Concomitant]
     Indication: HYPERTENSION
     Dosage: UNK
  4. NORVASC [Concomitant]
     Indication: HYPERTENSION
     Dosage: UNK
  5. LIPITOR [Concomitant]
     Indication: BLOOD CHOLESTEROL INCREASED
     Dosage: UNK
  6. COUMADINE [Concomitant]
     Indication: BLOOD DISORDER
     Dosage: 5MG ALTERNATE DAYS THREE TIMES A WEEK AND 2.5MG ON THE REMAINING DAYS

REACTIONS (2)
  - Off label use [Unknown]
  - Drug ineffective for unapproved indication [Unknown]
